FAERS Safety Report 6676170-1 (Version None)
Quarter: 2010Q2

REPORT INFORMATION
  Report Type: 
  Country: None (occurrence: None)
  Receive Date: 20100412
  Receipt Date: 20100405
  Transmission Date: 20101027
  Serious: Yes (Other)
  Sender: FDA-Public Use
  Company Number: US-SP-2010-00637

PATIENT
  Sex: Male

DRUGS (4)
  1. THERACYS [Suspect]
     Indication: BLADDER CANCER
     Dosage: INSTILLATION #7-8
     Route: 043
     Dates: start: 20091228, end: 20100112
  2. THERACYS [Suspect]
     Dosage: INSTILLATION #6
     Route: 065
     Dates: start: 20090928, end: 20090928
  3. THERACYS [Suspect]
     Dosage: INSTILLATION #2-5
     Route: 065
     Dates: start: 20090901, end: 20090922
  4. THERACYS [Suspect]
     Dosage: INSTILLATION #1
     Route: 065
     Dates: start: 20090825, end: 20090825

REACTIONS (6)
  - CYSTITIS NONINFECTIVE [None]
  - CYSTITIS ULCERATIVE [None]
  - DYSURIA [None]
  - HAEMATURIA [None]
  - POLLAKIURIA [None]
  - PYREXIA [None]
